FAERS Safety Report 8553351-3 (Version None)
Quarter: 2012Q3

REPORT INFORMATION
  Report Type: 
  Country: None (occurrence: None)
  Receive Date: 20120731
  Receipt Date: 20120625
  Transmission Date: 20120928
  Serious: No
  Sender: FDA-Public Use
  Company Number: US-ASTRAZENECA-2012SE42828

PATIENT
  Age: 69 Year
  Sex: Female
  Weight: 54.9 kg

DRUGS (8)
  1. LIPITOR [Concomitant]
  2. ASTELIN [Concomitant]
  3. PULMICORT [Suspect]
     Indication: NASAL POLYPS
     Route: 055
     Dates: start: 20120601, end: 20120601
  4. ALBUTEROL [Concomitant]
  5. FISH OIL [Concomitant]
  6. MAGNESIUM [Concomitant]
  7. CALCIUM D [Concomitant]
  8. FLOVENT [Concomitant]

REACTIONS (2)
  - FEELING ABNORMAL [None]
  - OFF LABEL USE [None]
